FAERS Safety Report 8784546 (Version 1)
Quarter: 2012Q4

REPORT INFORMATION
  Report Type: Spontaneous
  Country: US (occurrence: None)
  Receive Date: 20120831
  Receipt Date: 20120831
  Transmission Date: 20130627
  Serious: Yes (Other)
  Sender: FDA-Public Use
  Company Number: 2012P1055037

PATIENT
  Age: 56 Year
  Sex: Female

DRUGS (1)
  1. LITHIUM [Suspect]
     Indication: BIPOLAR DISORDER

REACTIONS (15)
  - Toxicity to various agents [None]
  - Tremor [None]
  - Confusional state [None]
  - Diarrhoea [None]
  - Influenza [None]
  - Mental status changes [None]
  - Fluid intake reduced [None]
  - Delirium [None]
  - Pyrexia [None]
  - Headache [None]
  - Antipsychotic drug level increased [None]
  - Renal failure acute [None]
  - Infection [None]
  - Renal failure chronic [None]
  - Renal transplant [None]
